FAERS Safety Report 23017986 (Version 1)
Quarter: 2023Q4

REPORT INFORMATION
  Report Type: Spontaneous
  Country: PR (occurrence: PR)
  Receive Date: 20231003
  Receipt Date: 20231003
  Transmission Date: 20240110
  Serious: No
  Sender: FDA-Public Use
  Company Number: PR-MTPC-MTDA2023-0023213

PATIENT
  Sex: Female

DRUGS (3)
  1. RADICAVA [Suspect]
     Active Substance: EDARAVONE
     Indication: Product used for unknown indication
     Dosage: 5 MILLILITER, QD FOR 10 DAYS OUT OF 14 DAYS, FOLLOWED BY 14 REST DAYS
     Route: 048
     Dates: start: 20230524
  2. RADICAVA [Suspect]
     Active Substance: EDARAVONE
     Indication: Product used for unknown indication
     Dosage: 5 MILLILITER, QD FOR 10 DAYS OUT OF 14 DAYS, FOLLOWED BY 14 REST DAYS
     Route: 048
     Dates: start: 20230524
  3. RILUTEK [Concomitant]
     Active Substance: RILUZOLE
     Indication: Product used for unknown indication
     Dosage: UNK
     Route: 065

REACTIONS (1)
  - Arthralgia [Recovered/Resolved]
